FAERS Safety Report 9346132 (Version 1)
Quarter: 2013Q2

REPORT INFORMATION
  Report Type: Spontaneous
  Country: US (occurrence: US)
  Receive Date: 20130613
  Receipt Date: 20130613
  Transmission Date: 20140414
  Serious: No
  Sender: FDA-Public Use
  Company Number: US-BIOGENIDEC-2013BI049859

PATIENT
  Sex: Male

DRUGS (3)
  1. AVONEX [Suspect]
     Indication: MULTIPLE SCLEROSIS
     Route: 030
     Dates: start: 20080411
  2. AVONEX [Suspect]
     Indication: MULTIPLE SCLEROSIS
     Route: 030
  3. ALEVE [Concomitant]
     Indication: PREMEDICATION

REACTIONS (6)
  - Multiple sclerosis [Not Recovered/Not Resolved]
  - Memory impairment [Recovered/Resolved]
  - Gait disturbance [Not Recovered/Not Resolved]
  - Back disorder [Unknown]
  - Influenza like illness [Recovered/Resolved]
  - Anxiety [Recovered/Resolved]
